FAERS Safety Report 12700406 (Version 1)
Quarter: 2016Q3

REPORT INFORMATION
  Report Type: Spontaneous
  Country: US (occurrence: US)
  Receive Date: 20160830
  Receipt Date: 20160830
  Transmission Date: 20161109
  Serious: No
  Sender: FDA-Public Use
  Company Number: US-SA-2016SA133466

PATIENT
  Age: 60 Year
  Sex: Male
  Weight: 85.72 kg

DRUGS (22)
  1. SODIUM CHLORIDE. [Concomitant]
     Active Substance: SODIUM CHLORIDE
     Indication: FLUSHING
     Dosage: 0.9 % IV
     Route: 042
     Dates: start: 20160219
  2. LOSARTAN POTASSIUM. [Concomitant]
     Active Substance: LOSARTAN POTASSIUM
     Route: 048
     Dates: start: 20151231
  3. VITAMIN D [Concomitant]
     Active Substance: CHOLECALCIFEROL
     Dosage: DOSE:1000 UNIT(S)
     Dates: start: 20151231
  4. MOXATAG [Concomitant]
     Active Substance: AMOXICILLIN
     Route: 048
     Dates: start: 20160614
  5. SYMBICORT [Concomitant]
     Active Substance: BUDESONIDE\FORMOTEROL FUMARATE DIHYDRATE
     Dosage: 2 PUFF AS DIRCTED TWICE DAILY
     Dates: start: 20150213
  6. FABRAZYME [Suspect]
     Active Substance: AGALSIDASE BETA
     Indication: FABRY^S DISEASE
     Route: 042
  7. DIPHENHYDRAMINE. [Concomitant]
     Active Substance: DIPHENHYDRAMINE
     Indication: ANAPHYLACTIC REACTION
     Route: 048
     Dates: start: 20160219
  8. CITALOPRAM HYDROBROMIDE. [Concomitant]
     Active Substance: CITALOPRAM HYDROBROMIDE
     Route: 048
     Dates: start: 20151231
  9. PROAIR HFA [Concomitant]
     Active Substance: ALBUTEROL SULFATE
     Dosage: 2 PUFFS INHALATIONAL EVERY 4 HOURS AS NEEDED
     Route: 055
     Dates: start: 20160213
  10. AMOXICILLIN/CLAVULANIC ACID [Concomitant]
     Route: 048
     Dates: start: 20160615
  11. EPIPEN [Concomitant]
     Active Substance: EPINEPHRINE
     Route: 030
     Dates: start: 20151215
  12. FABRAZYME [Suspect]
     Active Substance: AGALSIDASE BETA
     Indication: FABRY^S DISEASE
     Route: 042
  13. COUMADIN [Concomitant]
     Active Substance: WARFARIN SODIUM
     Route: 048
     Dates: start: 20160629
  14. COLCRYS [Concomitant]
     Active Substance: COLCHICINE
     Route: 048
     Dates: start: 20160615
  15. NORMAL SALINE [Concomitant]
     Active Substance: SODIUM CHLORIDE
     Dosage: 0.9 % IV
     Route: 042
     Dates: start: 20160219
  16. CIALIS [Concomitant]
     Active Substance: TADALAFIL
     Indication: ANAPHYLACTIC REACTION
     Route: 048
     Dates: start: 20151231
  17. METOPROLOL SUCCINATE. [Concomitant]
     Active Substance: METOPROLOL SUCCINATE
     Route: 048
     Dates: start: 20151008
  18. CELLCEPT [Concomitant]
     Active Substance: MYCOPHENOLATE MOFETIL\MYCOPHENOLATE MOFETIL HYDROCHLORIDE
     Route: 048
     Dates: start: 20150116
  19. LASIX [Concomitant]
     Active Substance: FUROSEMIDE
     Route: 048
     Dates: start: 20150116
  20. PREDNISONE. [Concomitant]
     Active Substance: PREDNISONE
     Route: 048
     Dates: start: 20150116
  21. PROGRAF [Concomitant]
     Active Substance: TACROLIMUS\TACROLIMUS ANHYDROUS
     Route: 048
     Dates: start: 20151231
  22. RANITIDINE. [Concomitant]
     Active Substance: RANITIDINE
     Route: 048
     Dates: start: 20150116

REACTIONS (1)
  - Gout [Not Recovered/Not Resolved]
